FAERS Safety Report 4822139-9 (Version None)
Quarter: 2005Q4

REPORT INFORMATION
  Report Type: 
  Country: None (occurrence: None)
  Receive Date: 20051103
  Receipt Date: 20050926
  Transmission Date: 20060501
  Serious: Yes (Hospitalization)
  Sender: FDA-Public Use
  Company Number: 2005PV002434

PATIENT
  Sex: 0

DRUGS (1)
  1. BYETTA [Suspect]
     Dosage: SC
     Route: 058

REACTIONS (2)
  - CHOLERA [None]
  - DIARRHOEA [None]
